FAERS Safety Report 7986854-0 (Version None)
Quarter: 2011Q4

REPORT INFORMATION
  Report Type: 
  Country: None (occurrence: None)
  Receive Date: 20111216
  Receipt Date: 20110228
  Transmission Date: 20120403
  Serious: No
  Sender: FDA-Public Use
  Company Number: US-BRISTOL-MYERS SQUIBB COMPANY-15575566

PATIENT
  Age: 10 Year
  Sex: Male

DRUGS (5)
  1. ABILIFY [Suspect]
     Indication: DEPRESSION
     Dosage: HALF TABLET
     Dates: start: 20110219, end: 20110222
  2. ABILIFY [Suspect]
     Indication: ABNORMAL BEHAVIOUR
     Dosage: HALF TABLET
     Dates: start: 20110219, end: 20110222
  3. ABILIFY [Suspect]
     Indication: ATTENTION DEFICIT/HYPERACTIVITY DISORDER
     Dosage: HALF TABLET
     Dates: start: 20110219, end: 20110222
  4. ABILIFY [Suspect]
     Indication: BIPOLAR DISORDER
     Dosage: HALF TABLET
     Dates: start: 20110219, end: 20110222
  5. CONCERTA [Concomitant]

REACTIONS (2)
  - EPISTAXIS [None]
  - ERECTION INCREASED [None]
